FAERS Safety Report 10193271 (Version 1)
Quarter: 2014Q2

REPORT INFORMATION
  Report Type: Spontaneous
  Country: US (occurrence: US)
  Receive Date: 20140524
  Receipt Date: 20140524
  Transmission Date: 20141212
  Serious: No
  Sender: FDA-Public Use
  Company Number: US-SA-2013SA116965

PATIENT
  Age: 44 Year
  Sex: Female

DRUGS (2)
  1. LANTUS SOLOSTAR [Suspect]
     Route: 051
     Dates: start: 20131101
  2. SOLOSTAR [Concomitant]

REACTIONS (4)
  - Dysgeusia [Recovered/Resolved]
  - Dizziness [Recovered/Resolved]
  - Injection site bruising [Recovering/Resolving]
  - Injection site pain [Unknown]
